FAERS Safety Report 8363354-X (Version None)
Quarter: 2012Q1

REPORT INFORMATION
  Report Type: 
  Country: None (occurrence: None)
  Receive Date: 20120323
  Receipt Date: 20110516
  Transmission Date: 20120608
  Serious: Yes (Other)
  Sender: FDA-Public Use
  Company Number: 163-21880-11052135

PATIENT
  Age: 76 Year
  Sex: Female

DRUGS (10)
  1. FLUOXETINE [Concomitant]
  2. ASPIRIN [Concomitant]
  3. ATENOLOL [Concomitant]
  4. HYDROCODONE/APAP (PROCET) [Concomitant]
  5. REVLIMID [Suspect]
     Indication: MULTIPLE MYELOMA
     Dosage: 15 MG, QOD X 21 DAYS, PO; 15 MG, QOD X21 DAYS, PO
     Route: 048
     Dates: start: 20100601, end: 20100901
  6. REVLIMID [Suspect]
     Indication: MULTIPLE MYELOMA
     Dosage: 15 MG, QOD X 21 DAYS, PO; 15 MG, QOD X21 DAYS, PO
     Route: 048
     Dates: start: 20090401, end: 20090901
  7. OMEPRAZOLE [Concomitant]
  8. LOMOTIL [Concomitant]
  9. DEXAMETHASONE [Concomitant]
  10. ALBUTEROL [Concomitant]

REACTIONS (2)
  - FATIGUE [None]
  - LIVER FUNCTION TEST ABNORMAL [None]
